FAERS Safety Report 20321742 (Version 1)
Quarter: 2022Q1

REPORT INFORMATION
  Report Type: Spontaneous
  Country: CN (occurrence: CN)
  Receive Date: 20220111
  Receipt Date: 20220111
  Transmission Date: 20220424
  Serious: Yes (Hospitalization)
  Sender: FDA-Public Use
  Company Number: CN-SA-SAC20220104001238

PATIENT
  Age: 87 Year
  Sex: Female
  Weight: 43 kg

DRUGS (9)
  1. ENOXAPARIN SODIUM [Suspect]
     Active Substance: ENOXAPARIN SODIUM
     Indication: Anticoagulant therapy
     Dosage: 2000 IU, QD
     Route: 058
     Dates: start: 20211215, end: 20211222
  2. QUETIAPINE FUMARATE [Suspect]
     Active Substance: QUETIAPINE FUMARATE
     Indication: Mental disorder
     Dosage: 0.025 G, QD
     Route: 048
     Dates: start: 20211217, end: 20211217
  3. CEFOPERAZONE SODIUM [Suspect]
     Active Substance: CEFOPERAZONE SODIUM
     Indication: Anti-infective therapy
     Dosage: 3 G, TID
     Route: 041
     Dates: start: 20211215, end: 20211220
  4. CITALOPRAM HYDROBROMIDE [Concomitant]
     Active Substance: CITALOPRAM HYDROBROMIDE
     Indication: Antidepressant therapy
     Dosage: 20 MG, QD
     Route: 048
     Dates: start: 20211206, end: 20211214
  5. REMIFENTANIL HYDROCHLORIDE [Concomitant]
     Active Substance: REMIFENTANIL HYDROCHLORIDE
     Indication: Pain
     Dosage: 2 MG, QD
     Route: 041
     Dates: start: 20211214, end: 20211215
  6. IMRECOXIB [Concomitant]
     Active Substance: IMRECOXIB
     Indication: Pain
     Route: 048
     Dates: start: 20211217, end: 20211221
  7. SULBACTAM SODIUM [Concomitant]
     Active Substance: SULBACTAM SODIUM
     Dosage: 3 G
     Route: 065
  8. SODIUM CHLORIDE [Concomitant]
     Active Substance: SODIUM CHLORIDE
     Route: 041
  9. OPRELVEKIN [Concomitant]
     Active Substance: OPRELVEKIN

REACTIONS (3)
  - White blood cell count decreased [Unknown]
  - Red blood cell count decreased [Unknown]
  - Platelet count decreased [Unknown]

NARRATIVE: CASE EVENT DATE: 20211217
